FAERS Safety Report 9880723 (Version 1)
Quarter: 2014Q1

REPORT INFORMATION
  Report Type: Spontaneous
  Country: US (occurrence: None)
  Receive Date: 20140206
  Receipt Date: 20140206
  Transmission Date: 20141002
  Serious: No
  Sender: FDA-Public Use
  Company Number: None

PATIENT
  Age: 63 Year
  Sex: Female

DRUGS (2)
  1. STIVARGA [Suspect]
     Indication: HEPATIC CANCER
     Route: 048
     Dates: start: 20140114
  2. STIVARGA [Suspect]
     Indication: LUNG NEOPLASM MALIGNANT
     Route: 048
     Dates: start: 20140114

REACTIONS (3)
  - Pain in extremity [None]
  - Local swelling [None]
  - Erythema [None]
